FAERS Safety Report 7037292-9 (Version None)
Quarter: 2010Q4

REPORT INFORMATION
  Report Type: 
  Country: None (occurrence: None)
  Receive Date: 20101011
  Receipt Date: 20100928
  Transmission Date: 20110411
  Serious: Yes (Hospitalization)
  Sender: FDA-Public Use
  Company Number: US-ELI_LILLY_AND_COMPANY-US201009007896

PATIENT
  Sex: Female

DRUGS (6)
  1. FORTEO [Suspect]
     Indication: OSTEOPOROSIS
     Dosage: 20 UG, DAILY (1/D)
  2. PREDNISONE [Concomitant]
     Indication: COLITIS
  3. TRAZODONE HCL [Concomitant]
  4. NEXIUM [Concomitant]
  5. COLOCORT [Concomitant]
     Indication: COLITIS
  6. FOSAMAX [Concomitant]

REACTIONS (1)
  - COLITIS [None]
